FAERS Safety Report 14894223 (Version 1)
Quarter: 2018Q2

REPORT INFORMATION
  Report Type: Spontaneous
  Country: FR (occurrence: FR)
  Receive Date: 20180515
  Receipt Date: 20180515
  Transmission Date: 20180711
  Serious: Yes (Hospitalization)
  Sender: FDA-Public Use
  Company Number: PHHY2018FR005619

PATIENT
  Age: 62 Year
  Sex: Male

DRUGS (1)
  1. REVOLADE [Suspect]
     Active Substance: ELTROMBOPAG
     Indication: IMMUNE THROMBOCYTOPENIC PURPURA
     Dosage: 100 MG, UNK
     Route: 048
     Dates: start: 20171226, end: 20180216

REACTIONS (3)
  - Ischaemic stroke [Recovered/Resolved with Sequelae]
  - Peripheral ischaemia [Not Recovered/Not Resolved]
  - Arterial thrombosis [Not Recovered/Not Resolved]

NARRATIVE: CASE EVENT DATE: 201801
